FAERS Safety Report 17312431 (Version 1)
Quarter: 2020Q1

REPORT INFORMATION
  Report Type: Spontaneous
  Country: US (occurrence: US)
  Receive Date: 20200123
  Receipt Date: 20200123
  Transmission Date: 20200409
  Serious: No
  Sender: FDA-Public Use
  Company Number: US-NOVOPROD-675196

PATIENT
  Sex: Female

DRUGS (2)
  1. OZEMPIC [Suspect]
     Active Substance: SEMAGLUTIDE
     Indication: DIABETES MELLITUS
     Dosage: 0.25 UNK
     Route: 058
     Dates: start: 201904, end: 2019
  2. OZEMPIC [Suspect]
     Active Substance: SEMAGLUTIDE
     Dosage: 0.5 MG, QD
     Route: 058
     Dates: start: 2019

REACTIONS (6)
  - Nausea [Recovered/Resolved]
  - Constipation [Recovered/Resolved]
  - Limb discomfort [Recovered/Resolved]
  - Vertigo [Recovered/Resolved]
  - Product communication issue [Unknown]
  - Inappropriate schedule of product administration [Unknown]

NARRATIVE: CASE EVENT DATE: 2019
